FAERS Safety Report 15466231 (Version 2)
Quarter: 2019Q1

REPORT INFORMATION
  Report Type: Report from Study
  Country: US (occurrence: US)
  Receive Date: 20181004
  Receipt Date: 20190214
  Transmission Date: 20190417
  Serious: Yes (Other)
  Sender: FDA-Public Use
  Company Number: PHEH2018US040552

PATIENT
  Age: 59 Year
  Sex: Female

DRUGS (1)
  1. ENTRESTO [Suspect]
     Active Substance: SACUBITRIL\VALSARTAN
     Indication: CARDIAC FAILURE
     Dosage: 50 MG (SACUBITRIL 24 MG/ VALSARTAN 26 MG) , BID
     Route: 048
     Dates: start: 20180723

REACTIONS (11)
  - Dizziness [Recovering/Resolving]
  - Emotional distress [Recovering/Resolving]
  - Ejection fraction decreased [Unknown]
  - Fatigue [Unknown]
  - Ventricular tachycardia [Unknown]
  - Heart rate irregular [Recovering/Resolving]
  - Dizziness postural [Recovering/Resolving]
  - Weight decreased [Unknown]
  - Dyspnoea [Unknown]
  - Procedural failure [Unknown]
  - Ventricular extrasystoles [Recovered/Resolved]

NARRATIVE: CASE EVENT DATE: 20181130
